FAERS Safety Report 8209213-4 (Version None)
Quarter: 2012Q1

REPORT INFORMATION
  Report Type: 
  Country: None (occurrence: None)
  Receive Date: 20120314
  Receipt Date: 20120305
  Transmission Date: 20120608
  Serious: Yes (Other)
  Sender: FDA-Public Use
  Company Number: PHHY2012JP021772

PATIENT

DRUGS (3)
  1. METHYLDOPA [Suspect]
  2. HYDRALAZINE HCL [Suspect]
  3. BETA BLOCKING AGENTS [Suspect]

REACTIONS (3)
  - PREMATURE BABY [None]
  - FOETAL EXPOSURE DURING PREGNANCY [None]
  - LOW BIRTH WEIGHT BABY [None]
